FAERS Safety Report 8328728-1 (Version None)
Quarter: 2012Q2

REPORT INFORMATION
  Report Type: 
  Country: None (occurrence: None)
  Receive Date: 20120502
  Receipt Date: 20120425
  Transmission Date: 20120825
  Serious: Yes (Other)
  Sender: FDA-Public Use
  Company Number: US-BAYER-2011-075147

PATIENT
  Age: 51 Year
  Sex: Female

DRUGS (2)
  1. YAZ [Suspect]
     Indication: MENOPAUSE
  2. YASMIN [Suspect]

REACTIONS (4)
  - THROMBOSIS [None]
  - INJURY [None]
  - PAIN [None]
  - THROMBOPHLEBITIS SUPERFICIAL [None]
